FAERS Safety Report 5025350-X (Version None)
Quarter: 2006Q2

REPORT INFORMATION
  Report Type: 
  Country: None (occurrence: None)
  Receive Date: 20060607
  Receipt Date: 20060307
  Transmission Date: 20061013
  Serious: Yes (Hospitalization, Disabling, Other)
  Sender: FDA-Public Use
  Company Number: 2006AD00015

PATIENT
  Age: 13 Year
  Sex: Female

DRUGS (19)
  1. KEFLEX [Suspect]
     Indication: STREPTOCOCCAL INFECTION
  2. BIAXIN [Suspect]
     Indication: OTITIS EXTERNA
     Dates: start: 19980101
  3. ALBUTEROL [Concomitant]
  4. ATROVENT [Concomitant]
  5. BECLOVENT [Concomitant]
  6. SOLU-MEDROL [Concomitant]
  7. TYLENOL (CAPLET) [Concomitant]
  8. DIFLUCAN [Concomitant]
  9. LACRI-LUBE [Concomitant]
  10. ZANTAC [Concomitant]
  11. MAGNESIUM GLUCONATE [Concomitant]
  12. MYCOSTATIN [Concomitant]
  13. AVEENO BATH [Concomitant]
  14. SUSTACAL [Concomitant]
  15. MERCUROCHROME [Concomitant]
  16. BENADRYL ^PARKE DAVIS^ /FRA/ [Concomitant]
  17. MOTRIN [Concomitant]
  18. PROVENTIL [Concomitant]
  19. CLINDAMYCIN [Concomitant]

REACTIONS (15)
  - BLINDNESS [None]
  - BLOOD GLUCOSE INCREASED [None]
  - DIARRHOEA [None]
  - DYSPHAGIA [None]
  - EAR INFECTION [None]
  - ERYTHEMA MULTIFORME [None]
  - EYE HAEMORRHAGE [None]
  - EYELID OEDEMA [None]
  - OCULAR HYPERAEMIA [None]
  - SKIN ULCER [None]
  - STEVENS-JOHNSON SYNDROME [None]
  - URINARY TRACT INFECTION [None]
  - VARICELLA [None]
  - VOMITING [None]
  - WHEEZING [None]
